FAERS Safety Report 4768624-X (Version None)
Quarter: 2005Q3

REPORT INFORMATION
  Report Type: 
  Country: None (occurrence: None)
  Receive Date: 20050914
  Receipt Date: 20050907
  Transmission Date: 20060218
  Serious: Yes (Death, Hospitalization)
  Sender: FDA-Public Use
  Company Number: US-JNJFOC-20050901830

PATIENT
  Age: 32 Year
  Sex: Female

DRUGS (5)
  1. TOPIRAMATE [Suspect]
     Indication: SUICIDE ATTEMPT
     Route: 048
  2. ACETAMINOPHEN/DIPHENHYDRAMINE [Suspect]
     Indication: SUICIDE ATTEMPT
     Route: 048
  3. LORAZEPAM [Suspect]
     Indication: SUICIDE ATTEMPT
     Route: 048
  4. QUETIAPINE FUMARATE [Suspect]
     Indication: SUICIDE ATTEMPT
     Route: 048
  5. FLUOXETINE [Suspect]
     Indication: SUICIDE ATTEMPT
     Route: 048

REACTIONS (5)
  - CARDIAC FAILURE [None]
  - COMPLETED SUICIDE [None]
  - ELECTROCARDIOGRAM QT CORRECTED INTERVAL PROLONGED [None]
  - INTENTIONAL MISUSE [None]
  - RESPIRATORY FAILURE [None]
